FAERS Safety Report 4783691-5 (Version None)
Quarter: 2005Q3

REPORT INFORMATION
  Report Type: 
  Country: None (occurrence: None)
  Receive Date: 20050927
  Receipt Date: 20050525
  Transmission Date: 20060218
  Serious: No
  Sender: FDA-Public Use
  Company Number: USA050598974

PATIENT
  Sex: Female

DRUGS (5)
  1. STRATTERA [Suspect]
     Indication: ATTENTION DEFICIT/HYPERACTIVITY DISORDER
     Dosage: 20 MG DAY
     Dates: start: 20050523
  2. ATIVAN [Concomitant]
  3. SOMA [Concomitant]
  4. ZOLOFT [Concomitant]
  5. AVAPRO [Concomitant]

REACTIONS (2)
  - BACK PAIN [None]
  - POLLAKIURIA [None]
